FAERS Safety Report 16626765 (Version 2)
Quarter: 2019Q3

REPORT INFORMATION
  Report Type: Spontaneous
  Country: US (occurrence: US)
  Receive Date: 20190724
  Receipt Date: 20190828
  Transmission Date: 20191004
  Serious: No
  Sender: FDA-Public Use
  Company Number: US-ASTRAZENECA-2019SE92584

PATIENT
  Sex: Female
  Weight: 54.4 kg

DRUGS (2)
  1. SPIRIVA [Concomitant]
     Active Substance: TIOTROPIUM BROMIDE MONOHYDRATE
  2. SYMBICORT [Suspect]
     Active Substance: BUDESONIDE\FORMOTEROL FUMARATE DIHYDRATE
     Indication: ASTHMA
     Dosage: 80/4.5 MCG, 2 PUFFS TWO TIMES A DAY
     Route: 055

REACTIONS (6)
  - Renal disorder [Unknown]
  - Body height decreased [Unknown]
  - Limb injury [Unknown]
  - Device malfunction [Unknown]
  - Back disorder [Unknown]
  - Wrong technique in device usage process [Unknown]
